FAERS Safety Report 11940877 (Version 1)
Quarter: 2016Q1

REPORT INFORMATION
  Report Type: Spontaneous
  Country: BR (occurrence: BR)
  Receive Date: 20160122
  Receipt Date: 20160122
  Transmission Date: 20160526
  Serious: Yes (Other)
  Sender: FDA-Public Use
  Company Number: PHHY2015BR136131

PATIENT
  Age: 64 Year
  Sex: Female
  Weight: 83 kg

DRUGS (7)
  1. DIOVAN AMLO FIX [Suspect]
     Active Substance: AMLODIPINE\VALSARTAN
     Indication: HYPERTENSION
  2. ALDACTONE [Concomitant]
     Active Substance: SPIRONOLACTONE
     Indication: HYPERTENSION
     Dosage: 1 DF, QD
     Route: 048
     Dates: start: 201511
  3. ANCORON [Concomitant]
     Active Substance: AMIODARONE HYDROCHLORIDE
     Indication: ARRHYTHMIA
     Dosage: 2 DF, QD
     Route: 048
     Dates: start: 1988
  4. AMIODARONE [Concomitant]
     Active Substance: AMIODARONE
     Indication: ARRHYTHMIA
     Dosage: 4 DF, QD
     Route: 048
  5. ORLISTAT [Concomitant]
     Active Substance: ORLISTAT
     Indication: WEIGHT INCREASED
     Dosage: 1 DF, QD
     Route: 048
     Dates: start: 201510
  6. DIOVAN AMLO FIX [Suspect]
     Active Substance: AMLODIPINE\VALSARTAN
     Indication: ARRHYTHMIA
     Dosage: 1 DF, QD (IN THE MORNING)
     Route: 048
     Dates: start: 20150805, end: 201510
  7. MAGNEN B6 [Concomitant]
     Indication: BLOOD PRESSURE INCREASED
     Dosage: 1 DF, QD
     Route: 048
     Dates: start: 201507

REACTIONS (8)
  - Discomfort [Recovered/Resolved]
  - Peripheral swelling [Recovered/Resolved]
  - Alopecia [Recovering/Resolving]
  - Feeling abnormal [Recovered/Resolved]
  - Product use issue [Unknown]
  - Fatigue [Recovered/Resolved]
  - Somnolence [Recovered/Resolved]
  - Paraesthesia [Recovered/Resolved]

NARRATIVE: CASE EVENT DATE: 20150805
